FAERS Safety Report 24163052 (Version 1)
Quarter: 2024Q3

REPORT INFORMATION
  Report Type: Spontaneous
  Country: US (occurrence: US)
  Receive Date: 20240801
  Receipt Date: 20240801
  Transmission Date: 20241017
  Serious: Yes (Other)
  Sender: SK LIFE SCIENCE
  Company Number: US-SK LIFE SCIENCE, INC-SKPVG-2024-001669

PATIENT

DRUGS (1)
  1. XCOPRI [Suspect]
     Active Substance: CENOBAMATE
     Indication: Epilepsy
     Dosage: 12.5MG, DAILY
     Route: 065
     Dates: start: 20240723

REACTIONS (1)
  - Depressed level of consciousness [Not Recovered/Not Resolved]

NARRATIVE: CASE EVENT DATE: 20240723
